FAERS Safety Report 9067638 (Version 1)
Quarter: 2013Q1

REPORT INFORMATION
  Report Type: Spontaneous
  Country: IE (occurrence: IE)
  Receive Date: 20130206
  Receipt Date: 20130206
  Transmission Date: 20140127
  Serious: Yes (Death)
  Sender: FDA-Public Use
  Company Number: IE-PFIZER INC-2013043439

PATIENT
  Age: 8 Decade
  Sex: Male

DRUGS (2)
  1. LINEZOLID [Suspect]
     Dosage: 600 MG, 2X/DAY
     Route: 048
  2. MEROPENEM [Concomitant]
     Route: 042

REACTIONS (1)
  - Death [Fatal]
